FAERS Safety Report 8088823-1 (Version None)
Quarter: 2012Q1

REPORT INFORMATION
  Report Type: 
  Country: None (occurrence: None)
  Receive Date: 20120128
  Receipt Date: 20110405
  Transmission Date: 20120608
  Serious: No
  Sender: FDA-Public Use
  Company Number: US-ABBOTT-11P-163-0717077-00

PATIENT
  Sex: Female
  Weight: 106.24 kg

DRUGS (6)
  1. HYDROCHLOROTHIAZIDE [Concomitant]
     Indication: HYPERTENSION
  2. OMEPRAZOLE [Concomitant]
     Indication: GASTROOESOPHAGEAL REFLUX DISEASE
  3. HUMIRA [Suspect]
     Indication: CROHN'S DISEASE
     Dates: start: 20100901, end: 20101201
  4. CELEXA [Concomitant]
     Indication: DEPRESSION
  5. NEOCON [Concomitant]
     Indication: CONTRACEPTION
  6. TRAZODONE HCL [Concomitant]
     Indication: SLEEP DISORDER
     Dosage: PRN

REACTIONS (1)
  - HEADACHE [None]
